FAERS Safety Report 4844171-1 (Version None)
Quarter: 2005Q4

REPORT INFORMATION
  Report Type: 
  Country: None (occurrence: None)
  Receive Date: 20051202
  Receipt Date: 20051128
  Transmission Date: 20060501
  Serious: Yes (Death)
  Sender: FDA-Public Use
  Company Number: PHBS2005JP17571

PATIENT
  Age: 65 Year
  Sex: Male

DRUGS (1)
  1. DIOVAN [Suspect]
     Dosage: 40 MG/DAY
     Route: 048
     Dates: start: 20040601, end: 20040701

REACTIONS (2)
  - MULTI-ORGAN FAILURE [None]
  - TOXIC EPIDERMAL NECROLYSIS [None]
